FAERS Safety Report 18967975 (Version 1)
Quarter: 2021Q1

REPORT INFORMATION
  Report Type: Spontaneous
  Country: GB (occurrence: GB)
  Receive Date: 20210304
  Receipt Date: 20210304
  Transmission Date: 20210420
  Serious: Yes (Life-Threatening, Hospitalization)
  Sender: FDA-Public Use
  Company Number: GB-STRIDES ARCOLAB LIMITED-2021SP002754

PATIENT
  Age: 9 Year
  Sex: Male

DRUGS (9)
  1. MYCOPHENOLATE MOFETIL. [Suspect]
     Active Substance: MYCOPHENOLATE MOFETIL
     Indication: ACUTE GRAFT VERSUS HOST DISEASE IN SKIN
  2. MYCOPHENOLATE MOFETIL. [Suspect]
     Active Substance: MYCOPHENOLATE MOFETIL
     Indication: ACUTE GRAFT VERSUS HOST DISEASE IN LIVER
     Dosage: UNK
     Route: 065
  3. PREDNISOLONE. [Suspect]
     Active Substance: PREDNISOLONE
     Indication: ACUTE GRAFT VERSUS HOST DISEASE IN INTESTINE
  4. CYCLOSPORINE. [Suspect]
     Active Substance: CYCLOSPORINE
     Indication: ACUTE GRAFT VERSUS HOST DISEASE IN SKIN
  5. PREDNISOLONE. [Suspect]
     Active Substance: PREDNISOLONE
     Indication: ACUTE GRAFT VERSUS HOST DISEASE IN SKIN
     Dosage: UNK
     Route: 065
  6. CYCLOSPORINE. [Suspect]
     Active Substance: CYCLOSPORINE
     Indication: ACUTE GRAFT VERSUS HOST DISEASE IN INTESTINE
  7. PREDNISOLONE. [Suspect]
     Active Substance: PREDNISOLONE
     Indication: ACUTE GRAFT VERSUS HOST DISEASE IN LIVER
  8. MYCOPHENOLATE MOFETIL. [Suspect]
     Active Substance: MYCOPHENOLATE MOFETIL
     Indication: ACUTE GRAFT VERSUS HOST DISEASE IN INTESTINE
  9. CYCLOSPORINE. [Suspect]
     Active Substance: CYCLOSPORINE
     Indication: ACUTE GRAFT VERSUS HOST DISEASE IN LIVER
     Dosage: UNK
     Route: 065

REACTIONS (6)
  - Acute respiratory distress syndrome [Unknown]
  - Hypertension [Unknown]
  - Thrombotic microangiopathy [Unknown]
  - Condition aggravated [Unknown]
  - Off label use [Unknown]
  - Venoocclusive liver disease [Unknown]
